FAERS Safety Report 13998823 (Version 2)
Quarter: 2018Q2

REPORT INFORMATION
  Report Type: Not Available
  Country: US (occurrence: US)
  Receive Date: 20170921
  Receipt Date: 20180524
  Transmission Date: 20180711
  Serious: No
  Sender: FDA-Public Use
  Company Number: US-NEUROCRINE BIOSCIENCES INC.-2017NBI00600

PATIENT
  Age: 58 Year
  Sex: Female

DRUGS (13)
  1. INGREZZA [Suspect]
     Active Substance: VALBENAZINE
     Indication: TARDIVE DYSKINESIA
     Route: 048
     Dates: start: 20170802, end: 2017
  2. ATIVAN [Concomitant]
     Active Substance: LORAZEPAM
  3. LISINOPRIL-HCTZ [Concomitant]
     Active Substance: HYDROCHLOROTHIAZIDE\LISINOPRIL
  4. PROAIR HFA [Concomitant]
     Active Substance: ALBUTEROL SULFATE
  5. VITAMIN E [Concomitant]
     Active Substance: .ALPHA.-TOCOPHEROL
  6. TRAZODONE [Concomitant]
     Active Substance: TRAZODONE HYDROCHLORIDE
  7. DIPHENHYDRAMINE. [Concomitant]
     Active Substance: DIPHENHYDRAMINE
  8. FLONASE [Concomitant]
     Active Substance: FLUTICASONE PROPIONATE
  9. ZOLOFT [Concomitant]
     Active Substance: SERTRALINE HYDROCHLORIDE
  10. AMBIEN [Concomitant]
     Active Substance: ZOLPIDEM TARTRATE
  11. ATENOLOL. [Concomitant]
     Active Substance: ATENOLOL
  12. BENZTROPINE. [Concomitant]
     Active Substance: BENZTROPINE
  13. TRAMADOL. [Concomitant]
     Active Substance: TRAMADOL

REACTIONS (6)
  - Drug effect decreased [None]
  - Hyperhidrosis [Not Recovered/Not Resolved]
  - Chest pain [Not Recovered/Not Resolved]
  - Heart rate irregular [Not Recovered/Not Resolved]
  - Dyspnoea [Not Recovered/Not Resolved]
  - Palpitations [Recovered/Resolved]

NARRATIVE: CASE EVENT DATE: 20170728
